FAERS Safety Report 25303715 (Version 1)
Quarter: 2025Q2

REPORT INFORMATION
  Report Type: Spontaneous
  Country: US (occurrence: US)
  Receive Date: 20250513
  Receipt Date: 20250513
  Transmission Date: 20250716
  Serious: Yes (Death, Other)
  Sender: BEIGENE
  Company Number: US-BEIGENE-BGN-2025-007203

PATIENT

DRUGS (1)
  1. BRUKINSA [Suspect]
     Active Substance: ZANUBRUTINIB
     Indication: Mantle cell lymphoma
     Route: 065

REACTIONS (3)
  - Drug-induced liver injury [Fatal]
  - Disease progression [Unknown]
  - Multimorbidity [Unknown]
